FAERS Safety Report 7123683-4 (Version None)
Quarter: 2010Q4

REPORT INFORMATION
  Report Type: 
  Country: None (occurrence: None)
  Receive Date: 20101125
  Receipt Date: 20101111
  Transmission Date: 20110411
  Serious: Yes (Other)
  Sender: FDA-Public Use
  Company Number: PHHY2010CL77532

PATIENT
  Age: 88 Year
  Sex: Female

DRUGS (2)
  1. TAREG [Suspect]
     Indication: HYPERTENSION
     Dosage: 160 MG, QD
  2. EUTIROX [Concomitant]

REACTIONS (1)
  - CARDIAC PACEMAKER REMOVAL [None]
